FAERS Safety Report 6121633-0 (Version None)
Quarter: 2009Q1

REPORT INFORMATION
  Report Type: 
  Country: None (occurrence: None)
  Receive Date: 20090317
  Receipt Date: 20090312
  Transmission Date: 20090719
  Serious: Yes (Death, Hospitalization, Other)
  Sender: FDA-Public Use
  Company Number: PHHY2008BR19143

PATIENT
  Age: 76 Year
  Sex: Female
  Weight: 86 kg

DRUGS (5)
  1. EXELON [Suspect]
     Indication: MEMORY IMPAIRMENT
     Dosage: 1 CAPSULE DAILY
     Route: 048
     Dates: start: 20080820
  2. LASIX [Concomitant]
     Dosage: 40 MG/DAY
  3. NORVASC [Concomitant]
     Dosage: 1 TABLET EVERY 12 HRS
  4. SIMVASTATIN [Concomitant]
     Dosage: 20 MG, QHS (10 PM)
  5. MAREVAN [Concomitant]
     Dosage: 5 MG/DAY

REACTIONS (10)
  - BLOOD PRESSURE INCREASED [None]
  - CHEST PAIN [None]
  - DIARRHOEA [None]
  - DYSPNOEA [None]
  - NOSOCOMIAL INFECTION [None]
  - RESPIRATORY FAILURE [None]
  - SOMNOLENCE [None]
  - TREMOR [None]
  - URINARY TRACT INFECTION [None]
  - VOMITING [None]
